FAERS Safety Report 11050320 (Version 4)
Quarter: 2017Q3

REPORT INFORMATION
  Report Type: Spontaneous
  Country: FR (occurrence: FR)
  Receive Date: 20150421
  Receipt Date: 20170830
  Transmission Date: 20171127
  Serious: Yes (Hospitalization, Other)
  Sender: FDA-Public Use
  Company Number: FR-ALEXION-A201501272

PATIENT
  Age: 0 Year
  Sex: Female
  Weight: 1.4 kg

DRUGS (1)
  1. SOLIRIS [Suspect]
     Active Substance: ECULIZUMAB
     Indication: PRODUCT USED FOR UNKNOWN INDICATION
     Dosage: UNK
     Route: 064

REACTIONS (5)
  - Pneumoperitoneum [Unknown]
  - Growth retardation [Unknown]
  - Foetal exposure during pregnancy [Recovered/Resolved]
  - Dyspepsia [Unknown]
  - Premature baby [Unknown]

NARRATIVE: CASE EVENT DATE: 20140731
